FAERS Safety Report 11177325 (Version 2)
Quarter: 2018Q1

REPORT INFORMATION
  Report Type: Spontaneous
  Country: US (occurrence: US)
  Receive Date: 20150610
  Receipt Date: 20180228
  Transmission Date: 20180508
  Serious: Yes (Hospitalization, Other)
  Sender: FDA-Public Use
  Company Number: US-009507513-1506USA004814

PATIENT
  Sex: Female

DRUGS (3)
  1. CALCIUM CITRATE (+) VITAMIN D (UNSPECIFIED) [Concomitant]
     Active Substance: CALCIUM CITRATE\VITAMIN D
     Indication: PRODUCT USED FOR UNKNOWN INDICATION
     Dosage: 2000-3000 MG, QD
     Route: 065
     Dates: start: 1997
  2. FOSAMAX [Suspect]
     Active Substance: ALENDRONATE SODIUM
     Indication: OSTEOPOROSIS
     Dosage: UNK UNK, UNKNOWN
     Route: 048
     Dates: start: 1997
  3. FOSAMAX [Suspect]
     Active Substance: ALENDRONATE SODIUM
     Indication: OSTEOPENIA

REACTIONS (8)
  - Foot deformity [Unknown]
  - Femur fracture [Unknown]
  - Foot fracture [Unknown]
  - Femur fracture [Unknown]
  - Osteoporosis [Unknown]
  - Fracture [Unknown]
  - Depression [Not Recovered/Not Resolved]
  - Anxiety [Not Recovered/Not Resolved]

NARRATIVE: CASE EVENT DATE: 2000
